FAERS Safety Report 25118852 (Version 1)
Quarter: 2025Q1

REPORT INFORMATION
  Report Type: Spontaneous
  Country: US (occurrence: US)
  Receive Date: 20250325
  Receipt Date: 20250325
  Transmission Date: 20250409
  Serious: Yes (Hospitalization)
  Sender: SANOFI AVENTIS
  Company Number: US-SA-2025SA085191

PATIENT
  Sex: Female
  Weight: 73.64 kg

DRUGS (19)
  1. DUPIXENT [Suspect]
     Active Substance: DUPILUMAB
     Indication: Asthma
     Dosage: 300 MG, QOW
     Route: 058
  2. JANTOVEN [Concomitant]
     Active Substance: WARFARIN SODIUM
  3. CAPTOPRIL [Concomitant]
     Active Substance: CAPTOPRIL
  4. CARVEDILOL [Concomitant]
     Active Substance: CARVEDILOL
  5. ENOXAPARIN SODIUM [Concomitant]
     Active Substance: ENOXAPARIN SODIUM
  6. BENZONATATE [Concomitant]
     Active Substance: BENZONATATE
  7. PREDNISONE [Concomitant]
     Active Substance: PREDNISONE
  8. SPIRONOLACTONE [Concomitant]
     Active Substance: SPIRONOLACTONE
  9. ALBUTEROL SULFATE [Concomitant]
     Active Substance: ALBUTEROL SULFATE
  10. METOPROLOL TARTRATE [Concomitant]
     Active Substance: METOPROLOL TARTRATE
  11. POTASSIUM CHLORIDE [Concomitant]
     Active Substance: POTASSIUM CHLORIDE
  12. LEVETIRACETAM [Concomitant]
     Active Substance: LEVETIRACETAM
  13. IBANDRONATE SODIUM [Concomitant]
     Active Substance: IBANDRONATE SODIUM
  14. ALLOPURINOL [Concomitant]
     Active Substance: ALLOPURINOL
  15. MONTELUKAST SODIUM [Concomitant]
     Active Substance: MONTELUKAST SODIUM
  16. LEVOCETIRIZINE DIHYDROCHLORIDE [Concomitant]
     Active Substance: LEVOCETIRIZINE DIHYDROCHLORIDE
  17. AMIODARONE HYDROCHLORIDE [Concomitant]
     Active Substance: AMIODARONE HYDROCHLORIDE
  18. FAMOTIDINE [Concomitant]
     Active Substance: FAMOTIDINE
  19. CLINDAMYCIN HYDROCHLORIDE [Concomitant]
     Active Substance: CLINDAMYCIN HYDROCHLORIDE

REACTIONS (2)
  - Lower limb fracture [Unknown]
  - Viral infection [Unknown]
